FAERS Safety Report 7224819-7 (Version None)
Quarter: 2011Q1

REPORT INFORMATION
  Report Type: 
  Country: None (occurrence: None)
  Receive Date: 20110113
  Receipt Date: 20101231
  Transmission Date: 20110831
  Serious: Yes (Other)
  Sender: FDA-Public Use
  Company Number: CH-CELGENEUS-151-21880-10111973

PATIENT
  Sex: Male
  Weight: 61 kg

DRUGS (10)
  1. DEXAMETHASONE [Concomitant]
     Indication: MULTIPLE MYELOMA
     Route: 065
     Dates: start: 20100624, end: 20100706
  2. FLUCONAZOLE [Concomitant]
     Indication: ANTIBIOTIC THERAPY
     Route: 065
     Dates: start: 20100624, end: 20100706
  3. REVLIMID [Suspect]
     Indication: MULTIPLE MYELOMA
     Route: 048
     Dates: start: 20100625, end: 20100706
  4. BACTRIM [Suspect]
     Indication: ANTIBIOTIC THERAPY
     Route: 065
     Dates: start: 20100624, end: 20100706
  5. ZOMETA [Concomitant]
  6. VALTREX [Concomitant]
     Indication: ANTIBIOTIC THERAPY
     Route: 065
     Dates: start: 20100624, end: 20100706
  7. PROSTAGUTT [Concomitant]
     Route: 065
  8. REVLIMID [Suspect]
     Route: 048
     Dates: start: 20101005, end: 20101016
  9. SORTIS [Concomitant]
     Route: 065
  10. CARDIOASPIRIN [Concomitant]
     Route: 065
     Dates: start: 20091101

REACTIONS (1)
  - HEPATITIS [None]
